FAERS Safety Report 6072065-5 (Version None)
Quarter: 2009Q1

REPORT INFORMATION
  Report Type: 
  Country: None (occurrence: None)
  Receive Date: 20090205
  Receipt Date: 20090205
  Transmission Date: 20090719
  Serious: No
  Sender: FDA-Public Use
  Company Number: None

PATIENT
  Sex: Female
  Weight: 65.7716 kg

DRUGS (1)
  1. AVELOX [Suspect]
     Indication: RESPIRATORY TRACT INFECTION
     Dosage: 400 MG ONCE PER DAY PO
     Route: 048
     Dates: start: 20090121, end: 20090129

REACTIONS (2)
  - PAIN IN EXTREMITY [None]
  - TENDON PAIN [None]
